FAERS Safety Report 5111638-0 (Version None)
Quarter: 2006Q3

REPORT INFORMATION
  Report Type: 
  Country: None (occurrence: None)
  Receive Date: 20060922
  Receipt Date: 20041207
  Transmission Date: 20061208
  Serious: Yes (Hospitalization, Other)
  Sender: FDA-Public Use
  Company Number: PHHO2004JP17321

PATIENT
  Age: 76 Year
  Sex: Female
  Weight: 59 kg

DRUGS (13)
  1. AMARYL [Concomitant]
     Indication: DIABETES MELLITUS
  2. TRICHLON [Concomitant]
     Indication: HYPERTENSION
  3. DIOVAN [Suspect]
     Indication: HYPERTENSION
     Dosage: 80 MG, QD
     Route: 048
     Dates: start: 20040511, end: 20050128
  4. DIOVAN [Suspect]
     Dosage: 80 MG, QD
     Route: 048
     Dates: start: 20030104, end: 20030117
  5. DIOVAN [Suspect]
     Dosage: 120MG IN 2 DAILY DOSES
     Route: 048
     Dates: start: 20030118, end: 20040120
  6. DIOVAN [Suspect]
     Dosage: 120 MG/DAILY
     Route: 048
     Dates: start: 20050129, end: 20050225
  7. DIOVAN [Suspect]
     Dosage: 80 MG, QD
     Route: 048
     Dates: start: 20050226, end: 20050916
  8. DIOVAN [Suspect]
     Dosage: 40 MG, QD
     Route: 048
     Dates: start: 20050917
  9. DIOVAN [Suspect]
     Dosage: NOT REPORTED
     Route: 048
     Dates: start: 20021221, end: 20030103
  10. NORVASC [Concomitant]
  11. CARDENALIN [Concomitant]
  12. DAONIL [Concomitant]
  13. MEVALOTIN [Concomitant]

REACTIONS (3)
  - CEREBRAL INFARCTION [None]
  - DIABETIC RETINOPATHY [None]
  - HEMIPLEGIA [None]
